FAERS Safety Report 11904582 (Version 1)
Quarter: 2016Q1

REPORT INFORMATION
  Report Type: Spontaneous
  Country: FR (occurrence: FR)
  Receive Date: 20160111
  Receipt Date: 20160111
  Transmission Date: 20160526
  Serious: Yes (Hospitalization)
  Sender: FDA-Public Use
  Company Number: FR-ORION CORPORATION ORION PHARMA-ENTC2016-0009

PATIENT
  Age: 44 Year
  Sex: Female

DRUGS (5)
  1. APOKINON [Suspect]
     Active Substance: APOMORPHINE
     Dosage: 1 INJECTION OF 3MG AS NEEDED, MAX. 3 INJ/WEEK
     Route: 058
  2. MADOPAR [Suspect]
     Active Substance: BENSERAZIDE HYDROCHLORIDE\LEVODOPA
     Dosage: STRENGTH: 100/25 MG, 1 DF IN CASE OF BLOCK, MAX. 4 DF/DAY
     Route: 065
     Dates: end: 20150109
  3. APOKINON [Suspect]
     Active Substance: APOMORPHINE
     Dosage: 2.2ML/HOUR FROM 08:00 AM TO 08:00 PM AND 1.6ML/HOUR FROM 08:00 PM TO 08:00 AM.
     Route: 058
  4. APOKINON [Suspect]
     Active Substance: APOMORPHINE
     Indication: PARKINSON^S DISEASE
     Dosage: RATE OF 2.4ML/HOUR FROM 08:00 AM TO 08:00 PM AND 1.6ML/HOUR FROM 08:00 PM TO 08:00 AM
     Route: 058
  5. STALEVO [Suspect]
     Active Substance: CARBIDOPA\ENTACAPONE\LEVODOPA
     Route: 048

REACTIONS (6)
  - Abnormal behaviour [Unknown]
  - Anxiety [Unknown]
  - Hallucination, visual [Unknown]
  - Dyskinesia [Recovering/Resolving]
  - Agitation [Unknown]
  - Hallucination, auditory [Unknown]

NARRATIVE: CASE EVENT DATE: 201412
